FAERS Safety Report 8054626 (Version 2)
Quarter: 2015Q1

REPORT INFORMATION
  Report Type: Spontaneous
  Country: US (occurrence: US)
  Receive Date: 20110726
  Receipt Date: 20150217
  Transmission Date: 20150721
  Serious: Yes (Other)
  Sender: FDA-Public Use
  Company Number: US-ROCHE-752013

PATIENT
  Age: 27 Year
  Sex: Male
  Weight: 56.7 kg

DRUGS (2)
  1. ACCUTANE [Suspect]
     Active Substance: ISOTRETINOIN
     Indication: ACNE
     Route: 065
     Dates: start: 19870501, end: 19870901
  2. ACCUTANE [Suspect]
     Active Substance: ISOTRETINOIN
     Route: 065

REACTIONS (5)
  - Suicidal ideation [Unknown]
  - Inflammatory bowel disease [Unknown]
  - Gastrointestinal injury [Unknown]
  - Depression [Unknown]
  - Colitis ulcerative [Unknown]

NARRATIVE: CASE EVENT DATE: 198805
